FAERS Safety Report 12137118 (Version 5)
Quarter: 2016Q4

REPORT INFORMATION
  Report Type: Report from Study
  Country: CO (occurrence: CO)
  Receive Date: 20160302
  Receipt Date: 20161227
  Transmission Date: 20170206
  Serious: Yes (Other)
  Sender: FDA-Public Use
  Company Number: PHHY2016CO026409

PATIENT
  Age: 60 Year
  Sex: Female
  Weight: 92 kg

DRUGS (5)
  1. VOTRIENT [Suspect]
     Active Substance: PAZOPANIB HYDROCHLORIDE
     Indication: RENAL CANCER METASTATIC
     Dosage: 3 DF, QD
     Route: 048
     Dates: start: 20160108, end: 20160301
  2. LOSARTAN. [Concomitant]
     Active Substance: LOSARTAN
     Indication: HYPERTENSION
     Dosage: 50 MG, BID
     Route: 048
     Dates: start: 20160302
  3. ACETAMINOPHEN. [Concomitant]
     Active Substance: ACETAMINOPHEN
     Indication: PAIN
     Dosage: 500 MG, PRN
     Route: 048
     Dates: start: 20160711
  4. VOTRIENT [Suspect]
     Active Substance: PAZOPANIB HYDROCHLORIDE
     Indication: METASTASES TO LUNG
  5. NIFEDIPINE. [Concomitant]
     Active Substance: NIFEDIPINE
     Indication: HYPERTENSION
     Dosage: 30 MG, QD
     Route: 048
     Dates: start: 20160302

REACTIONS (9)
  - Second primary malignancy [Unknown]
  - Arthralgia [Not Recovered/Not Resolved]
  - Pruritus [Unknown]
  - Ovarian germ cell teratoma [Unknown]
  - Dry skin [Unknown]
  - Generalised erythema [Not Recovered/Not Resolved]
  - Burning sensation [Unknown]
  - Pain [Not Recovered/Not Resolved]
  - Diarrhoea [Not Recovered/Not Resolved]

NARRATIVE: CASE EVENT DATE: 20160818
